FAERS Safety Report 5635900-8 (Version None)
Quarter: 2008Q1

REPORT INFORMATION
  Report Type: 
  Country: None (occurrence: None)
  Receive Date: 20080219
  Receipt Date: 20080213
  Transmission Date: 20080703
  Serious: Yes (Life-Threatening, Hospitalization)
  Sender: FDA-Public Use
  Company Number: 028-C5013-08020718

PATIENT
  Age: 57 Year
  Sex: Female
  Weight: 62.5 kg

DRUGS (1)
  1. CC-5013 (LENALIDOMIDE) (CAPSULES) [Suspect]
     Indication: NON-HODGKIN'S LYMPHOMA
     Dosage: 25 MG, OD X 21 DAYS, EVERY 28 DAYS, ORAL
     Route: 048
     Dates: start: 20070926, end: 20080209

REACTIONS (4)
  - ACUTE LEUKAEMIA [None]
  - BLOOD CREATININE INCREASED [None]
  - COUGH [None]
  - JAUNDICE [None]
